FAERS Safety Report 13081093 (Version 1)
Quarter: 2017Q1

REPORT INFORMATION
  Report Type: Spontaneous
  Country: US (occurrence: US)
  Receive Date: 20170103
  Receipt Date: 20170103
  Transmission Date: 20170428
  Serious: Yes (Death, Other)
  Sender: FDA-Public Use
  Company Number: US-PFIZER INC-2016602707

PATIENT
  Sex: Male

DRUGS (1)
  1. CHANTIX [Suspect]
     Active Substance: VARENICLINE TARTRATE
     Indication: SMOKING CESSATION THERAPY
     Dosage: UNK

REACTIONS (7)
  - Completed suicide [Fatal]
  - Hallucination [Unknown]
  - Memory impairment [Unknown]
  - Loss of consciousness [Unknown]
  - Depression [Unknown]
  - Product use issue [Unknown]
  - Anger [Unknown]
